FAERS Safety Report 21550626 (Version 1)
Quarter: 2022Q4

REPORT INFORMATION
  Report Type: Spontaneous
  Country: US (occurrence: None)
  Receive Date: 20221103
  Receipt Date: 20221103
  Transmission Date: 20230113
  Serious: Yes (Other)
  Sender: FDA-Public Use
  Company Number: None

PATIENT
  Age: 62 Year
  Sex: Female

DRUGS (1)
  1. BRIMONIDINE TARTRATE\TIMOLOL MALEATE [Suspect]
     Active Substance: BRIMONIDINE TARTRATE\TIMOLOL MALEATE
     Indication: Open angle glaucoma
     Dosage: FREQUENCY : TWICE A DAY;?
     Route: 047
     Dates: start: 20220830, end: 20220902

REACTIONS (7)
  - Product substitution issue [None]
  - Headache [None]
  - Eye pain [None]
  - Pain in extremity [None]
  - Chills [None]
  - Vitreous floaters [None]
  - Condition aggravated [None]

NARRATIVE: CASE EVENT DATE: 20220830
